FAERS Safety Report 9238264 (Version 1)
Quarter: 2013Q1

REPORT INFORMATION
  Report Type: Spontaneous
  Country: US (occurrence: None)
  Receive Date: 20121107
  Receipt Date: 20121107
  Transmission Date: 20140127
  Serious: Yes (Other)
  Sender: FDA-Public Use
  Company Number: 2011-01394

PATIENT
  Age: 65 Year
  Sex: Male
  Weight: 73.94 kg

DRUGS (3)
  1. LISINOPRIL [Suspect]
     Indication: HYPERTENSION
     Route: 048
     Dates: end: 20111205
  2. BACTRIM (UNKNOWN) [Concomitant]
  3. CEPHALEXIN (UNKNOWN) [Concomitant]

REACTIONS (1)
  - Angioedema [None]
